FAERS Safety Report 11163955 (Version 2)
Quarter: 2015Q3

REPORT INFORMATION
  Report Type: Spontaneous
  Country: US (occurrence: US)
  Receive Date: 20150604
  Receipt Date: 20150729
  Transmission Date: 20151125
  Serious: No
  Sender: FDA-Public Use
  Company Number: US-009507513-1505USA014708

PATIENT
  Age: 20 Year
  Sex: Female
  Weight: 56.69 kg

DRUGS (1)
  1. NEXPLANON [Suspect]
     Active Substance: ETONOGESTREL
     Indication: CONTRACEPTION
     Dosage: 68 MG/ONE ROD, INSERTED EVERY 3 YEARS
     Route: 059
     Dates: start: 201405, end: 20150521

REACTIONS (6)
  - Mood altered [Recovered/Resolved]
  - Implant site pain [Recovered/Resolved]
  - Burning sensation [Recovered/Resolved]
  - Vaginal haemorrhage [Unknown]
  - Metrorrhagia [Unknown]
  - Uterine haemorrhage [Unknown]

NARRATIVE: CASE EVENT DATE: 2014
